FAERS Safety Report 7071860-3 (Version None)
Quarter: 2010Q4

REPORT INFORMATION
  Report Type: 
  Country: None (occurrence: None)
  Receive Date: 20101029
  Receipt Date: 20091211
  Transmission Date: 20110411
  Serious: No
  Sender: FDA-Public Use
  Company Number: A0813808A

PATIENT
  Age: 64 Year
  Sex: Male

DRUGS (2)
  1. ADVAIR DISKUS 100/50 [Suspect]
     Indication: COUGH
     Dosage: 1PUFF TWICE PER DAY
     Route: 055
     Dates: start: 20091023
  2. UNSPECIFIED MEDICATIONS [Concomitant]

REACTIONS (2)
  - COUGH [None]
  - PRODUCT QUALITY ISSUE [None]
